FAERS Safety Report 5623674-6 (Version None)
Quarter: 2008Q1

REPORT INFORMATION
  Report Type: 
  Country: None (occurrence: None)
  Receive Date: 20080212
  Receipt Date: 20080130
  Transmission Date: 20080703
  Serious: Yes (Hospitalization, Other)
  Sender: FDA-Public Use
  Company Number: NO-ELI_LILLY_AND_COMPANY-NO200711004779

PATIENT
  Sex: Male

DRUGS (2)
  1. HUMALOG [Suspect]
     Dosage: UNK, UNKNOWN
     Route: 058
     Dates: start: 20071008
  2. SIMVASTATIN [Concomitant]
     Dosage: 20 MG, EACH EVENING
     Route: 065

REACTIONS (4)
  - DIABETES MELLITUS INADEQUATE CONTROL [None]
  - DRUG INEFFECTIVE [None]
  - HYPERGLYCAEMIA [None]
  - MALAISE [None]
